FAERS Safety Report 7752131-6 (Version None)
Quarter: 2011Q3

REPORT INFORMATION
  Report Type: 
  Country: None (occurrence: None)
  Receive Date: 20110915
  Receipt Date: 20110912
  Transmission Date: 20111222
  Serious: No
  Sender: FDA-Public Use
  Company Number: US-PFIZER INC-2011192391

PATIENT
  Age: 65 Year
  Sex: Male

DRUGS (5)
  1. CELEBREX [Concomitant]
     Dosage: 20 MG, 1X/DAY
     Route: 048
     Dates: start: 20100601
  2. METOPROLOL [Concomitant]
     Indication: ARRHYTHMIA
     Dosage: 25 MG, 1X/DAY
     Route: 048
     Dates: start: 20080101
  3. METOPROLOL [Concomitant]
     Indication: BLOOD PRESSURE
  4. ALPRAZOLAM [Suspect]
     Indication: ANXIETY
     Dosage: 1 MG, 1/2 TAB THREE TIMES DAILY
     Route: 048
     Dates: start: 20110730, end: 20110807
  5. TAMSULOSIN [Concomitant]
     Indication: BENIGN PROSTATIC HYPERPLASIA
     Dosage: 0.4 MG, 1X/DAY
     Route: 048
     Dates: start: 20090101

REACTIONS (2)
  - DRUG INEFFECTIVE [None]
  - ANXIETY [None]
